FAERS Safety Report 9314654 (Version 1)
Quarter: 2013Q2

REPORT INFORMATION
  Report Type: Spontaneous
  Country: CA (occurrence: CA)
  Receive Date: 20130529
  Receipt Date: 20130529
  Transmission Date: 20140414
  Serious: Yes (Hospitalization, Other)
  Sender: FDA-Public Use
  Company Number: CA-AMGEN-CANSP2013037355

PATIENT
  Age: 83 Year
  Sex: Female
  Weight: 72.73 kg

DRUGS (1)
  1. PROLIA [Suspect]
     Indication: OSTEOPOROSIS POSTMENOPAUSAL
     Dosage: UNK
     Dates: start: 20121006

REACTIONS (3)
  - Foot fracture [Unknown]
  - Phlebitis [Unknown]
  - Local swelling [Unknown]
